FAERS Safety Report 7009640-7 (Version None)
Quarter: 2010Q3

REPORT INFORMATION
  Report Type: 
  Country: None (occurrence: None)
  Receive Date: 20100903
  Receipt Date: 20100528
  Transmission Date: 20110219
  Serious: No
  Sender: FDA-Public Use
  Company Number: 163-22393-10060072

PATIENT
  Sex: Male

DRUGS (1)
  1. ISTODAX [Suspect]
     Indication: PRODUCT USED FOR UNKNOWN INDICATION
     Dosage: 14 MG/M2, DAYS 1, 8, 15, INTRAVENOUS
     Route: 042

REACTIONS (1)
  - DYSGEUSIA [None]
